FAERS Safety Report 18005670 (Version 6)
Quarter: 2021Q1

REPORT INFORMATION
  Report Type: Report from Study
  Country: JP (occurrence: JP)
  Receive Date: 20200710
  Receipt Date: 20210211
  Transmission Date: 20210419
  Serious: Yes (Hospitalization)
  Sender: FDA-Public Use
  Company Number: NVSJ2020JP006394

PATIENT
  Age: 3 Month
  Sex: Female
  Weight: 6.1 kg

DRUGS (4)
  1. ZOLGENSMA [Suspect]
     Active Substance: ONASEMNOGENE ABEPARVOVEC-XIOI
     Indication: SPINAL MUSCULAR ATROPHY
     Dosage: UNK, ONCE/SINGLE (1.1 X E14VG/KG)
     Route: 041
     Dates: start: 20200623
  2. PREDONINE [Concomitant]
     Active Substance: PREDNISOLONE
     Dosage: 0.25 MG/KG
     Route: 065
     Dates: start: 20200804, end: 20200818
  3. PREDONINE [Concomitant]
     Active Substance: PREDNISOLONE
     Indication: PRODUCT USED FOR UNKNOWN INDICATION
     Dosage: 1 MG/KG
     Route: 048
     Dates: start: 20200622, end: 20200720
  4. PREDONINE [Concomitant]
     Active Substance: PREDNISOLONE
     Dosage: 0.5 MG/KG
     Route: 065
     Dates: start: 20200721, end: 20200803

REACTIONS (7)
  - Thrombocytopenia [Recovered/Resolved]
  - Alanine aminotransferase increased [Recovered/Resolved]
  - Aspartate aminotransferase increased [Recovered/Resolved]
  - Vomiting [Unknown]
  - Troponin I increased [Recovered/Resolved]
  - Asthenia [Unknown]
  - Pyrexia [Recovered/Resolved]

NARRATIVE: CASE EVENT DATE: 20200626
